FAERS Safety Report 19384384 (Version 1)
Quarter: 2021Q2

REPORT INFORMATION
  Report Type: Report from Study
  Country: None (occurrence: US)
  Receive Date: 20210608
  Receipt Date: 20210608
  Transmission Date: 20210717
  Serious: Yes (Hospitalization)
  Sender: FDA-Public Use
  Company Number: US-ABBVIE-21K-163-3936112-00

PATIENT
  Age: 69 Year
  Sex: Male
  Weight: 74.91 kg

DRUGS (4)
  1. DUOPA [Suspect]
     Active Substance: CARBIDOPA\LEVODOPA
     Indication: PRODUCT USED FOR UNKNOWN INDICATION
     Dosage: STARTED 3?4 YEARS AGO
     Route: 050
     Dates: start: 2017
  2. DUOPA [Suspect]
     Active Substance: CARBIDOPA\LEVODOPA
  3. PFIZER?BIONTECH COVID?19 VACCINE [Concomitant]
     Active Substance: TOZINAMERAN
     Indication: COVID-19 IMMUNISATION
     Dosage: PFIZER
     Route: 050
     Dates: start: 20210307, end: 20210307
  4. PFIZER?BIONTECH COVID?19 VACCINE [Concomitant]
     Active Substance: TOZINAMERAN
     Dosage: PFIZER
     Route: 050
     Dates: start: 20210327, end: 20210327

REACTIONS (11)
  - Pharyngitis streptococcal [Recovered/Resolved]
  - Asthenia [Recovering/Resolving]
  - Urinary tract infection [Recovered/Resolved]
  - White blood cell count increased [Recovered/Resolved]
  - Dysstasia [Not Recovered/Not Resolved]
  - Sepsis [Recovered/Resolved]
  - Gastrointestinal motility disorder [Not Recovered/Not Resolved]
  - Blood lactic acid increased [Recovered/Resolved]
  - Urine abnormality [Recovered/Resolved]
  - Joint range of motion decreased [Not Recovered/Not Resolved]
  - Pyrexia [Recovered/Resolved]

NARRATIVE: CASE EVENT DATE: 202105
